FAERS Safety Report 9897410 (Version 1)
Quarter: 2014Q1

REPORT INFORMATION
  Report Type: Other
  Country: US (occurrence: US)
  Receive Date: 20140214
  Receipt Date: 20140214
  Transmission Date: 20141002
  Serious: Yes (Hospitalization)
  Sender: FDA-Public Use
  Company Number: US-BRISTOL-MYERS SQUIBB COMPANY-20171054

PATIENT
  Age: 64 Year
  Sex: Male

DRUGS (8)
  1. METFORMIN HCL [Suspect]
  2. LEVOTHYROXINE [Suspect]
  3. SIMVASTATIN [Suspect]
     Indication: BLOOD CHOLESTEROL ABNORMAL
  4. ASPIRIN [Concomitant]
  5. CARVEDILOL [Concomitant]
  6. INSULIN GLARGINE [Concomitant]
  7. INSULIN ASPART [Concomitant]
  8. LISINOPRIL [Concomitant]

REACTIONS (1)
  - Rhabdomyolysis [Unknown]
